FAERS Safety Report 8588505-3 (Version None)
Quarter: 2012Q3

REPORT INFORMATION
  Report Type: 
  Country: None (occurrence: None)
  Receive Date: 20120813
  Receipt Date: 20120803
  Transmission Date: 20120928
  Serious: Yes (Other)
  Sender: FDA-Public Use
  Company Number: US-JNJFOC-20120803230

PATIENT
  Sex: Female
  Weight: 77.11 kg

DRUGS (1)
  1. REMICADE [Suspect]
     Indication: CROHN'S DISEASE
     Route: 042
     Dates: start: 20120717, end: 20120717

REACTIONS (7)
  - HEADACHE [None]
  - ARTHRALGIA [None]
  - MORBID THOUGHTS [None]
  - URINARY INCONTINENCE [None]
  - HYPOKINESIA [None]
  - PYREXIA [None]
  - MALAISE [None]
